FAERS Safety Report 25840393 (Version 1)
Quarter: 2025Q3

REPORT INFORMATION
  Report Type: Other
  Country: ID (occurrence: ID)
  Receive Date: 20250924
  Receipt Date: 20250924
  Transmission Date: 20251021
  Serious: Yes (Hospitalization, Other)
  Sender: ANI
  Company Number: ID-ANIPHARMA-030633

PATIENT
  Age: 40 Year
  Sex: Male

DRUGS (1)
  1. CEFADROXIL [Suspect]
     Active Substance: CEFADROXIL
     Indication: Product used for unknown indication

REACTIONS (2)
  - Cardiac failure [Recovering/Resolving]
  - Drug reaction with eosinophilia and systemic symptoms [Unknown]
